FAERS Safety Report 7264650-X (Version None)
Quarter: 2011Q1

REPORT INFORMATION
  Report Type: 
  Country: None (occurrence: None)
  Receive Date: 20110119
  Receipt Date: 20110103
  Transmission Date: 20110831
  Serious: Yes (Hospitalization, Disabling, Other)
  Sender: FDA-Public Use
  Company Number: 2011P1003947

PATIENT
  Sex: Male

DRUGS (1)
  1. AMIODARONE HCL TABLET (NO PREF. NAME) [Suspect]
     Dates: start: 20031125, end: 20040601

REACTIONS (6)
  - MENTAL DISORDER [None]
  - ACTIVITIES OF DAILY LIVING IMPAIRED [None]
  - OPTIC NEUROPATHY [None]
  - BLINDNESS [None]
  - PAIN [None]
  - MULTIPLE INJURIES [None]
